FAERS Safety Report 8972410 (Version 1)
Quarter: 2012Q4

REPORT INFORMATION
  Report Type: 
  Country: NO (occurrence: NO)
  Receive Date: 20121219
  Receipt Date: 20121219
  Transmission Date: 20130627
  Serious: Yes (Hospitalization)
  Sender: FDA-Public Use
  Company Number: NO-PFIZER INC-2012311327

PATIENT
  Age: 89 Year
  Sex: Male

DRUGS (16)
  1. TRIATEC [Suspect]
     Dosage: 1.25 mg, 2x/day
  2. SIMVASTATIN [Suspect]
     Dosage: 40 mg, daily
  3. SELO-ZOK [Suspect]
     Dosage: 50 mg, daily
  4. SELO-ZOK [Suspect]
     Dosage: 25 mg, daily
  5. FUCIDIN [Suspect]
     Indication: WOUND INFECTION
     Dosage: 500 mg, 3x/day
     Dates: start: 20121004, end: 20121012
  6. FUCIDIN [Suspect]
     Indication: THROMBOPHLEBITIS
  7. DICLOXACILLIN [Suspect]
     Indication: WOUND INFECTION
     Dosage: 500 mg, 3x/day
     Dates: start: 20121004, end: 20121012
  8. DICLOXACILLIN [Suspect]
     Indication: THROMBOPHLEBITIS
  9. FUROSEMIDE [Suspect]
     Dosage: 20 mg, 1x/day
  10. KALEORID [Suspect]
     Dosage: 750 mg, 2x/day
  11. NIFEREX [Concomitant]
     Dosage: UNK
  12. PLAVIX [Concomitant]
     Dosage: UNK
  13. SOMAC [Concomitant]
     Dosage: UNK
  14. TRIOBE [Concomitant]
     Dosage: UNK
  15. HIRUDOID [Concomitant]
     Dosage: UNK
  16. IRON DEXTRAN [Concomitant]
     Dosage: 100 mg, 1x/day

REACTIONS (3)
  - Myoglobin blood increased [Unknown]
  - Blood creatinine increased [Unknown]
  - Blood pressure decreased [Unknown]
